FAERS Safety Report 5229337-3 (Version None)
Quarter: 2007Q1

REPORT INFORMATION
  Report Type: 
  Country: None (occurrence: None)
  Receive Date: 20061201
  Receipt Date: 20051110
  Transmission Date: 20070707
  Serious: Yes (Other)
  Sender: FDA-Public Use
  Company Number: 2005-134508-NL

PATIENT
  Age: 28 Year
  Sex: Female
  Weight: 66.7 kg

DRUGS (6)
  1. NUVARING [Suspect]
     Indication: CONTRACEPTION
     Dosage: VAGINAL
     Route: 067
     Dates: start: 20040930, end: 20051031
  2. ATENOLOL [Concomitant]
  3. AMITRIPTYLINE HCL [Concomitant]
  4. LEXAPRO [Concomitant]
  5. MAXALT [Concomitant]
  6. DARVOCET-N 100 [Concomitant]

REACTIONS (1)
  - DEEP VEIN THROMBOSIS [None]
